FAERS Safety Report 8286769-7 (Version None)
Quarter: 2012Q2

REPORT INFORMATION
  Report Type: 
  Country: None (occurrence: None)
  Receive Date: 20120411
  Receipt Date: 20120328
  Transmission Date: 20120825
  Serious: Yes (Other)
  Sender: FDA-Public Use
  Company Number: KAD201203-000222

PATIENT
  Age: 59 Year
  Sex: Female

DRUGS (1)
  1. RIBAVIRIN [Suspect]

REACTIONS (13)
  - EPISTAXIS [None]
  - VISION BLURRED [None]
  - DEPRESSED MOOD [None]
  - FATIGUE [None]
  - MIGRAINE [None]
  - ANAEMIA [None]
  - DYSPNOEA [None]
  - RASH [None]
  - CRYING [None]
  - DIZZINESS [None]
  - INFLUENZA LIKE ILLNESS [None]
  - NAUSEA [None]
  - VISUAL IMPAIRMENT [None]
